FAERS Safety Report 25468689 (Version 1)
Quarter: 2025Q2

REPORT INFORMATION
  Report Type: Spontaneous
  Country: US (occurrence: US)
  Receive Date: 20250623
  Receipt Date: 20250623
  Transmission Date: 20250716
  Serious: Yes (Hospitalization)
  Sender: SANOFI AVENTIS
  Company Number: US-SA-2025SA172286

PATIENT
  Age: 60 Year
  Sex: Male
  Weight: 108.8 kg

DRUGS (4)
  1. PLAVIX [Suspect]
     Active Substance: CLOPIDOGREL BISULFATE
  2. KEVEYIS [Suspect]
     Active Substance: DICHLORPHENAMIDE
     Indication: Paralysis
     Dosage: 50 MG, BID
     Dates: start: 20250501, end: 202505
  3. KEVEYIS [Suspect]
     Active Substance: DICHLORPHENAMIDE
     Dosage: 25 MG, QD
     Dates: start: 20250505, end: 20250505
  4. KEVEYIS [Suspect]
     Active Substance: DICHLORPHENAMIDE
     Dosage: 50 MG, QD
     Dates: start: 20250505

REACTIONS (13)
  - Hypotension [Unknown]
  - Limb discomfort [Unknown]
  - Night sweats [Unknown]
  - Initial insomnia [Unknown]
  - Middle insomnia [Unknown]
  - Aphasia [Unknown]
  - Contusion [Unknown]
  - Decreased appetite [Unknown]
  - Fatigue [Unknown]
  - Illness [Unknown]
  - Taste disorder [Unknown]
  - Paraesthesia [Unknown]
  - Wrong product administered [Unknown]

NARRATIVE: CASE EVENT DATE: 20250501
